FAERS Safety Report 15996485 (Version 3)
Quarter: 2021Q2

REPORT INFORMATION
  Report Type: Spontaneous
  Country: US (occurrence: US)
  Receive Date: 20190222
  Receipt Date: 20210520
  Transmission Date: 20210716
  Serious: Yes (Other)
  Sender: FDA-Public Use
  Company Number: PHEH2019US007193

PATIENT
  Sex: Female

DRUGS (1)
  1. TASIGNA [Suspect]
     Active Substance: NILOTINIB
     Indication: CHRONIC MYELOID LEUKAEMIA
     Dosage: 300 MG, BID
     Route: 048
     Dates: start: 201301, end: 201611

REACTIONS (31)
  - Peripheral ischaemia [Unknown]
  - Arteriosclerosis [Unknown]
  - Emotional distress [Unknown]
  - Peripheral vascular disorder [Unknown]
  - Back pain [Unknown]
  - Cough [Unknown]
  - Nausea [Unknown]
  - Pain [Unknown]
  - Sputum purulent [Unknown]
  - Lymphoma [Unknown]
  - Gastric ulcer [Unknown]
  - Musculoskeletal disorder [Unknown]
  - Injury [Unknown]
  - Contusion [Unknown]
  - Intermittent claudication [Unknown]
  - Dyspepsia [Unknown]
  - Anxiety [Unknown]
  - Dysphagia [Unknown]
  - Stenosis [Unknown]
  - Diarrhoea [Unknown]
  - Vomiting [Unknown]
  - Obesity [Unknown]
  - Limb injury [Unknown]
  - Aortic arteriosclerosis [Unknown]
  - Pyrexia [Unknown]
  - Dizziness [Unknown]
  - Rash [Unknown]
  - Peptic ulcer [Unknown]
  - Peripheral arterial occlusive disease [Unknown]
  - Gastrooesophageal reflux disease [Unknown]
  - Stomatitis [Unknown]

NARRATIVE: CASE EVENT DATE: 2014
